FAERS Safety Report 6429860-X (Version None)
Quarter: 2009Q4

REPORT INFORMATION
  Report Type: 
  Country: None (occurrence: None)
  Receive Date: 20091103
  Receipt Date: 20091023
  Transmission Date: 20100525
  Serious: Yes (Other)
  Sender: FDA-Public Use
  Company Number: 2009-04459

PATIENT
  Age: 64 Year
  Sex: Female

DRUGS (3)
  1. VELCADE [Suspect]
     Indication: PLASMACYTOMA
     Dosage: 1.2 MG/M2, UNK, UNK
     Dates: start: 20090828
  2. ADRIAMYCIN PFS [Concomitant]
  3. DEXAMETHASONE [Concomitant]

REACTIONS (7)
  - DRUG TOXICITY [None]
  - MENINGEAL NEOPLASM [None]
  - MYELITIS [None]
  - PARAPARESIS [None]
  - PARESIS [None]
  - SENSORY DISTURBANCE [None]
  - SPINAL FRACTURE [None]
